FAERS Safety Report 15365063 (Version 24)
Quarter: 2025Q4

REPORT INFORMATION
  Report Type: Report from Study
  Country: EU (occurrence: EU)
  Receive Date: 20180910
  Receipt Date: 20251224
  Transmission Date: 20260117
  Serious: Yes (Hospitalization, Other)
  Sender: ROCHE
  Company Number: EU-ROCHE-2110206

PATIENT
  Age: 28 Year
  Sex: Female
  Weight: 62.00 kg

DRUGS (24)
  1. OCREVUS [Suspect]
     Active Substance: OCRELIZUMAB
     Indication: Relapsing-remitting multiple sclerosis
     Dosage: 600 MG IN 169 DAYS
     Route: 042
  2. OCREVUS [Suspect]
     Active Substance: OCRELIZUMAB
     Dosage: SECOND INFUSION
     Route: 042
  3. OCREVUS [Suspect]
     Active Substance: OCRELIZUMAB
     Dosage: 24/SEP/2019
     Route: 042
  4. OCREVUS [Suspect]
     Active Substance: OCRELIZUMAB
     Route: 042
  5. OCREVUS [Suspect]
     Active Substance: OCRELIZUMAB
     Route: 042
     Dates: start: 20180315
  6. OCREVUS [Suspect]
     Active Substance: OCRELIZUMAB
     Route: 042
  7. OCREVUS [Suspect]
     Active Substance: OCRELIZUMAB
     Indication: Relapsing-remitting multiple sclerosis
     Route: 058
  8. OCREVUS [Suspect]
     Active Substance: OCRELIZUMAB
     Route: 058
  9. CORTISONE [Suspect]
     Active Substance: CORTISONE
     Indication: Premedication
  10. LAMOTRIGINE [Concomitant]
     Active Substance: LAMOTRIGINE
     Indication: Epilepsy
     Dosage: 1-0-1
  11. LAMOTRIGINE [Concomitant]
     Active Substance: LAMOTRIGINE
     Dosage: 175-0-200 MG
  12. LAMOTRIGINE [Concomitant]
     Active Substance: LAMOTRIGINE
  13. LAMOTRIGINE [Concomitant]
     Active Substance: LAMOTRIGINE
  14. LAMOTRIGINE [Concomitant]
     Active Substance: LAMOTRIGINE
     Dosage: 1-0-1
  15. CHOLECALCIFEROL [Concomitant]
     Active Substance: CHOLECALCIFEROL
  16. PANTOPRAZOLE SODIUM [Concomitant]
     Active Substance: PANTOPRAZOLE SODIUM
  17. IVABRADINE [Concomitant]
     Active Substance: IVABRADINE
  18. DALFAMPRIDINE [Concomitant]
     Active Substance: DALFAMPRIDINE
  19. TOLPERISONE [Concomitant]
     Active Substance: TOLPERISONE
  20. GABAPENTIN [Concomitant]
     Active Substance: GABAPENTIN
  21. VENLAFAXINE HYDROCHLORIDE [Concomitant]
     Active Substance: VENLAFAXINE HYDROCHLORIDE
  22. BRIVARACETAM [Concomitant]
     Active Substance: BRIVARACETAM
     Dosage: 1-0-1
  23. COMIRNATY [Concomitant]
  24. BRIVARACETAM [Concomitant]
     Active Substance: BRIVARACETAM

REACTIONS (28)
  - Fatigue [Recovered/Resolved]
  - Food craving [Recovered/Resolved]
  - Middle insomnia [Recovered/Resolved]
  - Epilepsy [Recovered/Resolved]
  - Drug level fluctuating [Recovered/Resolved]
  - Band neutrophil count decreased [Recovered/Resolved]
  - Neutrophil count decreased [Recovered/Resolved]
  - Eosinophil count increased [Recovered/Resolved]
  - Basophil count decreased [Recovered/Resolved]
  - Monocyte count increased [Recovered/Resolved]
  - Myelocyte present [Unknown]
  - Blast cells present [Unknown]
  - Granulocyte count increased [Recovered/Resolved]
  - Granulocyte count decreased [Recovered/Resolved]
  - Lymphopenia [Unknown]
  - Fatigue [Recovered/Resolved]
  - Food craving [Recovered/Resolved]
  - Epilepsy [Recovered/Resolved]
  - Skin reaction [Recovered/Resolved]
  - Nasopharyngitis [Recovered/Resolved]
  - Coronavirus infection [Unknown]
  - Disturbance in attention [Recovered/Resolved]
  - Fall [Unknown]
  - Contusion [Recovered/Resolved]
  - Relapsing-remitting multiple sclerosis [Recovered/Resolved]
  - Partial seizures [Recovered/Resolved]
  - COVID-19 [Recovered/Resolved]
  - Nasal oedema [Recovered/Resolved]

NARRATIVE: CASE EVENT DATE: 20180315
